FAERS Safety Report 7220337-0 (Version None)
Quarter: 2011Q1

REPORT INFORMATION
  Report Type: 
  Country: None (occurrence: None)
  Receive Date: 20110111
  Receipt Date: 20110107
  Transmission Date: 20110831
  Serious: Yes (Death, Other)
  Sender: FDA-Public Use
  Company Number: US-CEPHALON-2011000113

PATIENT
  Sex: Female

DRUGS (12)
  1. PERCOCET [Suspect]
     Indication: BACK PAIN
     Dates: end: 20101127
  2. PERCOCET [Suspect]
     Indication: MIGRAINE
  3. FENTANYL [Suspect]
     Indication: MIGRAINE
  4. SOMA [Suspect]
     Indication: MIGRAINE
  5. ZIPSOR [Suspect]
     Indication: BACK PAIN
     Dates: end: 20101127
  6. LEXAPRO [Suspect]
     Indication: DEPRESSION
     Dates: start: 20100604, end: 20101127
  7. ZIPSOR [Suspect]
     Indication: MIGRAINE
  8. FENTORA [Suspect]
     Indication: MIGRAINE
  9. FENTORA [Suspect]
     Indication: BACK PAIN
     Route: 002
     Dates: end: 20101127
  10. VALIUM [Suspect]
  11. FENTANYL [Suspect]
     Indication: BACK PAIN
     Route: 062
     Dates: end: 20101127
  12. SOMA [Suspect]
     Indication: BACK PAIN
     Dates: end: 20101127

REACTIONS (4)
  - CEREBROVASCULAR ACCIDENT [None]
  - CHEST PAIN [None]
  - DRUG PRESCRIBING ERROR [None]
  - DRUG ABUSE [None]
